FAERS Safety Report 12765440 (Version 2)
Quarter: 2017Q1

REPORT INFORMATION
  Report Type: Spontaneous
  Country: US (occurrence: US)
  Receive Date: 20160921
  Receipt Date: 20170217
  Transmission Date: 20170428
  Serious: No
  Sender: FDA-Public Use
  Company Number: US-TEVA-688185ACC

PATIENT
  Age: 25 Year
  Sex: Female
  Weight: 86.26 kg

DRUGS (1)
  1. TAKE ACTION [Suspect]
     Active Substance: LEVONORGESTREL
     Indication: POST COITAL CONTRACEPTION
     Dates: start: 20160731, end: 20160731

REACTIONS (10)
  - Headache [Recovered/Resolved]
  - Abdominal pain [Recovered/Resolved]
  - Neck pain [Recovered/Resolved]
  - Vaginal haemorrhage [Recovered/Resolved]
  - Nasal congestion [Recovered/Resolved]
  - Menstruation delayed [Recovered/Resolved]
  - Breast pain [Recovered/Resolved]
  - Nausea [Recovered/Resolved]
  - Rhinorrhoea [Recovered/Resolved]
  - Back pain [Recovered/Resolved]

NARRATIVE: CASE EVENT DATE: 20160807
